FAERS Safety Report 17880139 (Version 1)
Quarter: 2020Q2

REPORT INFORMATION
  Report Type: Spontaneous
  Country: US (occurrence: US)
  Receive Date: 20200610
  Receipt Date: 20200610
  Transmission Date: 20200714
  Serious: No
  Sender: FDA-Public Use
  Company Number: None

PATIENT
  Age: 63 Year
  Sex: Male
  Weight: 81.4 kg

DRUGS (10)
  1. CARVEDILOL 25 MG PO BID (HOME MED) [Concomitant]
  2. NICARDIPINE 2.5 MG/HR IV [Concomitant]
  3. ATORVASTATIN 80 MG PO NIGHTLY (HOME MED) [Concomitant]
  4. LABETALOL 20 MG IV ONCE [Concomitant]
  5. AMLODIPINE 10 MG PO DAILY (HOME MED) [Concomitant]
  6. LISINOPRIL 40 MG PO DAILY (HOME MED) [Concomitant]
  7. ALTEPLASE. [Suspect]
     Active Substance: ALTEPLASE
     Indication: CEREBROVASCULAR ACCIDENT
     Dosage: ?          OTHER FREQUENCY:ONCE;?
     Route: 041
     Dates: start: 20190925, end: 20190925
  8. HYDROCHLOROTHIAZIDE 25 MG PO DAILY (HOME MED) [Concomitant]
  9. ASPIRIN 81 MG PO DAILY (HOME MED) [Concomitant]
  10. CLOPIDOGREL 75 MG PO DAILY (HOME MED) [Concomitant]

REACTIONS (1)
  - Lip swelling [None]

NARRATIVE: CASE EVENT DATE: 20190925
